FAERS Safety Report 10710910 (Version 2)
Quarter: 2015Q1

REPORT INFORMATION
  Report Type: Report from Study
  Country: US (occurrence: US)
  Receive Date: 20150114
  Receipt Date: 20150119
  Transmission Date: 20150721
  Serious: No
  Sender: FDA-Public Use
  Company Number: US-ASTRAZENECA-2014SE54565

PATIENT
  Age: 24806 Day
  Sex: Male
  Weight: 76.2 kg

DRUGS (1)
  1. BRILINTA [Suspect]
     Active Substance: TICAGRELOR
     Indication: ACUTE CORONARY SYNDROME
     Route: 048
     Dates: start: 201401, end: 20141201

REACTIONS (5)
  - Discomfort [Recovered/Resolved]
  - Gastric disorder [Unknown]
  - Intentional product misuse [Unknown]
  - Drug dose omission [Unknown]
  - Feeling abnormal [Recovered/Resolved]

NARRATIVE: CASE EVENT DATE: 201403
